FAERS Safety Report 18440236 (Version 1)
Quarter: 2020Q4

REPORT INFORMATION
  Report Type: Report from Study
  Country: None (occurrence: US)
  Receive Date: 20201029
  Receipt Date: 20201029
  Transmission Date: 20210114
  Serious: Yes (Hospitalization, Other)
  Sender: FDA-Public Use
  Company Number: US-ABBVIE-20K-163-3626123-00

PATIENT
  Sex: Female

DRUGS (2)
  1. HUMIRA [Suspect]
     Active Substance: ADALIMUMAB
     Indication: RHEUMATOID ARTHRITIS
     Dosage: CITRATE FREE
     Route: 058
     Dates: start: 2017
  2. HUMIRA [Suspect]
     Active Substance: ADALIMUMAB
     Indication: PSORIASIS

REACTIONS (12)
  - Condition aggravated [Not Recovered/Not Resolved]
  - Meningitis [Recovered/Resolved]
  - Exposure to communicable disease [Unknown]
  - Pain [Unknown]
  - Immunisation anxiety related reaction [Not Recovered/Not Resolved]
  - Inflammation [Unknown]
  - Seizure [Recovered/Resolved]
  - Cerebrovascular accident [Recovering/Resolving]
  - Pneumonia [Recovered/Resolved]
  - Transient ischaemic attack [Recovering/Resolving]
  - Osteomyelitis [Not Recovered/Not Resolved]
  - Mobility decreased [Recovering/Resolving]

NARRATIVE: CASE EVENT DATE: 2020
